FAERS Safety Report 5941595-6 (Version None)
Quarter: 2008Q4

REPORT INFORMATION
  Report Type: 
  Country: None (occurrence: None)
  Receive Date: 20081104
  Receipt Date: 20081104
  Transmission Date: 20090506
  Serious: No
  Sender: FDA-Public Use
  Company Number: None

PATIENT
  Age: 82 Year
  Sex: Male
  Weight: 97.07 kg

DRUGS (1)
  1. OXYBUTYNIN CHLORIDE [Suspect]
     Indication: HYPERTONIC BLADDER
     Dosage: 5 MG BID PO
     Route: 048
     Dates: start: 20080229, end: 20081103

REACTIONS (3)
  - DRY MOUTH [None]
  - DYSPEPSIA [None]
  - HALLUCINATION [None]
